FAERS Safety Report 9328969 (Version 4)
Quarter: 2014Q3

REPORT INFORMATION
  Report Type: Report from Study
  Country: US (occurrence: US)
  Receive Date: 20130604
  Receipt Date: 20140922
  Transmission Date: 20150326
  Serious: Yes (Hospitalization, Other)
  Sender: FDA-Public Use
  Company Number: US-BRISTOL-MYERS SQUIBB COMPANY-18941781

PATIENT
  Age: 50 Year
  Sex: Male
  Weight: 82.7 kg

DRUGS (1)
  1. IPILIMUMAB [Suspect]
     Active Substance: IPILIMUMAB
     Indication: MALIGNANT MELANOMA
     Dosage: TOTAL DOSE:849 MG ?RECENT DOSE:10-APR-2013, 01-MAY-2013 ?NO.OF COURSES:3
     Route: 042
     Dates: start: 20130320

REACTIONS (3)
  - Conjunctivitis [Recovered/Resolved with Sequelae]
  - Hypophosphataemia [Recovered/Resolved with Sequelae]
  - Colitis [Unknown]

NARRATIVE: CASE EVENT DATE: 20130512
